FAERS Safety Report 7600555-X (Version None)
Quarter: 2011Q3

REPORT INFORMATION
  Report Type: 
  Country: None (occurrence: None)
  Receive Date: 20110711
  Receipt Date: 20110705
  Transmission Date: 20111222
  Serious: Yes (Hospitalization)
  Sender: FDA-Public Use
  Company Number: FR-SANOFI-AVENTIS-2011SA042421

PATIENT
  Age: 70 Year
  Sex: Female

DRUGS (5)
  1. EFFEXOR [Suspect]
     Route: 048
     Dates: start: 20061101, end: 20081001
  2. LITHIUM CARBONATE [Suspect]
     Route: 048
  3. FOSAMAX [Suspect]
     Route: 048
     Dates: start: 20060408, end: 20081007
  4. ZOLPIDEM [Suspect]
     Route: 048
     Dates: start: 20030701, end: 20080901
  5. ABILIFY [Suspect]
     Route: 048
     Dates: start: 20061101, end: 20080901

REACTIONS (1)
  - OSTEONECROSIS [None]
